FAERS Safety Report 17093492 (Version 5)
Quarter: 2019Q4

REPORT INFORMATION
  Report Type: Report from Study
  Country: MX (occurrence: MX)
  Receive Date: 20191129
  Receipt Date: 20191231
  Transmission Date: 20200122
  Serious: Yes (Death, Hospitalization)
  Sender: FDA-Public Use
  Company Number: NVSC2019MX052336

PATIENT
  Sex: Female
  Weight: 78 kg

DRUGS (1)
  1. CO-DIOVAN [Suspect]
     Active Substance: HYDROCHLOROTHIAZIDE\VALSARTAN
     Indication: HYPERTENSION
     Dosage: 1 DF (12.5 MG VALSARTAN, 160 MG HYDROCHLOROTHIAZIDE), QD
     Route: 048
     Dates: start: 2011

REACTIONS (6)
  - Gastritis [Fatal]
  - Respiratory failure [Fatal]
  - Toxicity to various agents [Unknown]
  - Multiple organ dysfunction syndrome [Fatal]
  - Hepatic failure [Unknown]
  - Renal failure [Fatal]
